FAERS Safety Report 10233575 (Version 1)
Quarter: 2014Q2

REPORT INFORMATION
  Report Type: Spontaneous
  Country: GB (occurrence: GB)
  Receive Date: 20140612
  Receipt Date: 20140612
  Transmission Date: 20141212
  Serious: Yes (Hospitalization)
  Sender: FDA-Public Use
  Company Number: GB-BRISTOL-MYERS SQUIBB COMPANY-20962486

PATIENT
  Age: 69 Year
  Sex: Female

DRUGS (3)
  1. METFORMIN HCL [Suspect]
  2. CHLORAMPHENICOL [Suspect]
  3. RANIBIZUMAB [Suspect]
     Dosage: INF ON:19SEP,17OCT,20DEC13.?INTERRUPTED ON:20FEB2014.?LAST DOSE:16JAN14?RESTARTED ON:20MAR14
     Route: 031
     Dates: start: 20130919

REACTIONS (2)
  - Gastroenteritis [Recovered/Resolved]
  - Diarrhoea [Not Recovered/Not Resolved]
